FAERS Safety Report 8138680-X (Version None)
Quarter: 2012Q1

REPORT INFORMATION
  Report Type: 
  Country: None (occurrence: None)
  Receive Date: 20120215
  Receipt Date: 20120210
  Transmission Date: 20120608
  Serious: Yes (Death, Life-Threatening, Hospitalization, Other)
  Sender: FDA-Public Use
  Company Number: US-ELI_LILLY_AND_COMPANY-US201112001352

PATIENT
  Sex: Male

DRUGS (9)
  1. BYETTA [Suspect]
     Dosage: 10 UG, BID
     Route: 058
     Dates: end: 20110826
  2. ULORIC [Concomitant]
     Indication: GOUT
  3. LOVAZA [Concomitant]
  4. ASPIRIN [Concomitant]
     Dosage: 325 MG, UNKNOWN
     Route: 048
  5. VERAPAMIL [Concomitant]
     Indication: HYPERTENSION
  6. BYETTA [Suspect]
     Indication: TYPE 2 DIABETES MELLITUS
     Dosage: 5 UG, BID
     Route: 058
  7. LANTUS [Concomitant]
     Indication: TYPE 2 DIABETES MELLITUS
  8. PRANDIN [Concomitant]
     Indication: TYPE 2 DIABETES MELLITUS
  9. ZETIA [Concomitant]
     Indication: HYPERCHOLESTEROLAEMIA

REACTIONS (12)
  - COMA [None]
  - ACUTE RESPIRATORY DISTRESS SYNDROME [None]
  - MULTI-ORGAN FAILURE [None]
  - PANCREATITIS NECROTISING [None]
  - DIALYSIS [None]
  - CHOLELITHIASIS [None]
  - SEPSIS [None]
  - CHOLECYSTITIS ACUTE [None]
  - COLOSTOMY [None]
  - OFF LABEL USE [None]
  - RENAL FAILURE [None]
  - GASTROINTESTINAL HAEMORRHAGE [None]
